FAERS Safety Report 10713080 (Version 3)
Quarter: 2015Q2

REPORT INFORMATION
  Report Type: Spontaneous
  Country: US (occurrence: US)
  Receive Date: 20150115
  Receipt Date: 20150415
  Transmission Date: 20150821
  Serious: Yes (Death, Other)
  Sender: FDA-Public Use
  Company Number: US-NOVOPROD-434869

PATIENT
  Age: 62 Year
  Sex: Male
  Weight: 103.4 kg

DRUGS (1)
  1. VICTOZA [Suspect]
     Active Substance: LIRAGLUTIDE
     Indication: TYPE 2 DIABETES MELLITUS
     Dosage: UNKNOWN
     Route: 058
     Dates: end: 20140707

REACTIONS (2)
  - Pancreatic carcinoma [Fatal]
  - Deep vein thrombosis [Unknown]
